FAERS Safety Report 8588221-8 (Version None)
Quarter: 2012Q3

REPORT INFORMATION
  Report Type: 
  Country: None (occurrence: None)
  Receive Date: 20120803
  Receipt Date: 20120803
  Transmission Date: 20120928
  Serious: No
  Sender: FDA-Public Use
  Company Number: None

PATIENT
  Age: 38 Year
  Sex: Female
  Weight: 73.4827 kg

DRUGS (1)
  1. CREST PRO HEALTH RINSE PROCTOR AND GAMBLE [Suspect]
     Dates: start: 20120701, end: 20120723

REACTIONS (5)
  - GLOSSITIS [None]
  - STOMATITIS [None]
  - HYPOAESTHESIA ORAL [None]
  - DRY MOUTH [None]
  - DYSGEUSIA [None]
